FAERS Safety Report 21283302 (Version 2)
Quarter: 2022Q3

REPORT INFORMATION
  Report Type: Report from Study
  Country: CN (occurrence: None)
  Receive Date: 20220901
  Receipt Date: 20220930
  Transmission Date: 20221027
  Serious: Yes (Hospitalization)
  Sender: FDA-Public Use
  Company Number: 2022A300263

PATIENT
  Age: 25670 Day
  Sex: Female

DRUGS (92)
  1. DURVALUMAB [Suspect]
     Active Substance: DURVALUMAB
     Indication: Non-small cell lung cancer
     Route: 042
     Dates: start: 20220812, end: 20220812
  2. GEMCITABINE [Suspect]
     Active Substance: GEMCITABINE
     Indication: Non-small cell lung cancer
     Route: 042
     Dates: start: 20220812, end: 20220812
  3. GEMCITABINE [Suspect]
     Active Substance: GEMCITABINE
     Indication: Non-small cell lung cancer
     Route: 042
     Dates: start: 20220819, end: 20220819
  4. CARBOPLATIN [Suspect]
     Active Substance: CARBOPLATIN
     Indication: Non-small cell lung cancer
     Dosage: 4 AUC
     Route: 042
     Dates: start: 20220812, end: 20220812
  5. ACETYLCYSTEINE SOLUTION FOR INHALATION [Concomitant]
     Indication: Productive cough
     Route: 055
     Dates: start: 20220723, end: 20220802
  6. IPRATROPIUM BROMIDE [Concomitant]
     Active Substance: IPRATROPIUM BROMIDE
     Indication: Productive cough
     Route: 055
     Dates: start: 20220723, end: 20220802
  7. ALBUTEROL SULFATE [Concomitant]
     Active Substance: ALBUTEROL SULFATE
     Indication: Productive cough
     Route: 055
     Dates: start: 20220723, end: 20220802
  8. MAGNESIUM ISOGLYCYRRHIZINATE INJECTION [Concomitant]
     Indication: Liver transplant rejection
     Route: 042
     Dates: start: 20220723, end: 20220805
  9. MAGNESIUM ISOGLYCYRRHIZINATE INJECTION [Concomitant]
     Indication: Liver transplant rejection
     Route: 042
     Dates: start: 20220818, end: 20220822
  10. MAGNESIUM ISOGLYCYRRHIZINATE INJECTION [Concomitant]
     Indication: Liver transplant rejection
     Route: 042
     Dates: start: 20220826
  11. CALCII DIBUTYRY-LADENOSI NI CYCLOPHOSPHAS FOR INJECTION [Concomitant]
     Indication: Myocardial depression
     Route: 042
     Dates: start: 20220723, end: 20220805
  12. CALCII DIBUTYRY-LADENOSI NI CYCLOPHOSPHAS FOR INJECTION [Concomitant]
     Indication: Myocardial depression
     Route: 042
     Dates: start: 20220809, end: 20220815
  13. CALCII DIBUTYRY-LADENOSI NI CYCLOPHOSPHAS FOR INJECTION [Concomitant]
     Indication: Myocardial depression
     Route: 042
     Dates: start: 20220826
  14. POTASSIUM CHLORIDE INJECTION10% [Concomitant]
     Indication: Electrocution
     Route: 042
     Dates: start: 20220723, end: 20220805
  15. POTASSIUM CHLORIDE INJECTION10% [Concomitant]
     Indication: Mineral supplementation
     Route: 042
     Dates: start: 20220723, end: 20220805
  16. POTASSIUM CHLORIDE INJECTION10% [Concomitant]
     Indication: Electrocution
     Route: 042
     Dates: start: 20220729, end: 20220805
  17. POTASSIUM CHLORIDE INJECTION10% [Concomitant]
     Indication: Mineral supplementation
     Route: 042
     Dates: start: 20220729, end: 20220805
  18. POTASSIUM CHLORIDE INJECTION10% [Concomitant]
     Indication: Electrocution
     Route: 042
     Dates: start: 20220731, end: 20220803
  19. POTASSIUM CHLORIDE INJECTION10% [Concomitant]
     Indication: Mineral supplementation
     Route: 042
     Dates: start: 20220731, end: 20220803
  20. POTASSIUM CHLORIDE INJECTION10% [Concomitant]
     Indication: Electrocution
     Route: 042
     Dates: start: 20220809, end: 20220815
  21. POTASSIUM CHLORIDE INJECTION10% [Concomitant]
     Indication: Mineral supplementation
     Route: 042
     Dates: start: 20220809, end: 20220815
  22. POTASSIUM CHLORIDE INJECTION10% [Concomitant]
     Indication: Electrocution
     Route: 042
     Dates: start: 20220813, end: 20220815
  23. POTASSIUM CHLORIDE INJECTION10% [Concomitant]
     Indication: Mineral supplementation
     Route: 042
     Dates: start: 20220813, end: 20220815
  24. POTASSIUM CHLORIDE INJECTION10% [Concomitant]
     Indication: Electrocution
     Route: 042
     Dates: start: 20220818, end: 20220822
  25. POTASSIUM CHLORIDE INJECTION10% [Concomitant]
     Indication: Mineral supplementation
     Route: 042
     Dates: start: 20220818, end: 20220822
  26. POTASSIUM CHLORIDE INJECTION10% [Concomitant]
     Indication: Electrocution
     Route: 042
     Dates: start: 20220818, end: 20220822
  27. POTASSIUM CHLORIDE INJECTION10% [Concomitant]
     Indication: Mineral supplementation
     Route: 042
     Dates: start: 20220818, end: 20220822
  28. POTASSIUM CHLORIDE INJECTION10% [Concomitant]
     Indication: Electrocution
     Route: 042
     Dates: start: 20220812, end: 20220812
  29. POTASSIUM CHLORIDE INJECTION10% [Concomitant]
     Indication: Mineral supplementation
     Route: 042
     Dates: start: 20220812, end: 20220812
  30. POTASSIUM CHLORIDE INJECTION10% [Concomitant]
     Indication: Electrocution
     Route: 042
     Dates: start: 20220812, end: 20220812
  31. POTASSIUM CHLORIDE INJECTION10% [Concomitant]
     Indication: Mineral supplementation
     Route: 042
     Dates: start: 20220812, end: 20220812
  32. POTASSIUM CHLORIDE INJECTION10% [Concomitant]
     Indication: Electrocution
     Route: 042
     Dates: start: 20220812, end: 20220812
  33. POTASSIUM CHLORIDE INJECTION10% [Concomitant]
     Indication: Mineral supplementation
     Route: 042
     Dates: start: 20220812, end: 20220812
  34. POTASSIUM CHLORIDE INJECTION10% [Concomitant]
     Indication: Electrocution
     Route: 042
     Dates: start: 20220814, end: 20220814
  35. POTASSIUM CHLORIDE INJECTION10% [Concomitant]
     Indication: Mineral supplementation
     Route: 042
     Dates: start: 20220814, end: 20220814
  36. POTASSIUM CHLORIDE INJECTION10% [Concomitant]
     Indication: Electrocution
     Route: 042
     Dates: start: 20220819, end: 20220819
  37. POTASSIUM CHLORIDE INJECTION10% [Concomitant]
     Indication: Mineral supplementation
     Route: 042
     Dates: start: 20220819, end: 20220819
  38. POTASSIUM CHLORIDE INJECTION10% [Concomitant]
     Indication: Electrocution
     Route: 042
     Dates: start: 20220826
  39. POTASSIUM CHLORIDE INJECTION10% [Concomitant]
     Indication: Mineral supplementation
     Route: 042
     Dates: start: 20220826
  40. POTASSIUM CHLORIDE INJECTION10% [Concomitant]
     Indication: Electrocution
     Route: 042
     Dates: start: 20220826
  41. POTASSIUM CHLORIDE INJECTION10% [Concomitant]
     Indication: Mineral supplementation
     Route: 042
     Dates: start: 20220826
  42. INSULIN NOS [Concomitant]
     Active Substance: INSULIN NOS
     Indication: Blood glucose
     Dosage: 4.0000 U DAILY
     Route: 042
     Dates: start: 20220723, end: 20220805
  43. INSULIN NOS [Concomitant]
     Active Substance: INSULIN NOS
     Indication: Blood glucose
     Dosage: 4.0000 U DAILY
     Route: 042
     Dates: start: 20220809, end: 20220815
  44. BROMHEXINE HYDROCHLORIDE AND GLUCOSE INJECTION [Concomitant]
     Indication: Productive cough
     Route: 042
     Dates: start: 20220725, end: 20220805
  45. SODIUM GLUCURONIC ACID INJECTION [Concomitant]
     Indication: Liver transplant rejection
     Route: 042
     Dates: start: 20220729, end: 20220805
  46. SODIUM GLUCURONIC ACID INJECTION [Concomitant]
     Indication: Liver transplant rejection
     Route: 042
     Dates: start: 20220809, end: 20220815
  47. SODIUM GLUCURONIC ACID INJECTION [Concomitant]
     Indication: Liver transplant rejection
     Route: 042
     Dates: start: 20220818, end: 20220822
  48. SODIUM GLUCURONIC ACID INJECTION [Concomitant]
     Indication: Liver transplant rejection
     Route: 042
     Dates: start: 20220826
  49. GINKGOLIDE INJECTION [Concomitant]
     Indication: Collateral circulation
     Route: 042
     Dates: start: 20220731, end: 20220803
  50. MONOAMMONIUM GLYCYRRHIZINATE AND CYSTEINE AND SODIUM CHLORIDE INJEC... [Concomitant]
     Indication: Liver transplant rejection
     Route: 042
     Dates: start: 20220809, end: 20220815
  51. MONOAMMONIUM GLYCYRRHIZINATE AND CYSTEINE AND SODIUM CHLORIDE INJEC... [Concomitant]
     Indication: Liver transplant rejection
     Route: 042
     Dates: start: 20220818, end: 20220820
  52. TROPISETRON HYDROCHLORIDE INJECTION [Concomitant]
     Indication: Vomiting
     Route: 042
     Dates: start: 20220812, end: 20220815
  53. TROPISETRON HYDROCHLORIDE INJECTION [Concomitant]
     Indication: Vomiting
     Route: 042
     Dates: start: 20220819, end: 20220820
  54. OMEPRAZOLE SODIUM FOR INJECTION [Concomitant]
     Indication: Hyperchlorhydria
     Route: 042
     Dates: start: 20220812, end: 20220815
  55. OMEPRAZOLE SODIUM FOR INJECTION [Concomitant]
     Indication: Hyperchlorhydria
     Route: 042
     Dates: start: 20220818, end: 20220822
  56. METOCLOPRAMIDEDI HYDROCHLORIDE INJECTION [Concomitant]
     Indication: Vomiting
     Route: 042
     Dates: start: 20220813, end: 20220815
  57. METOCLOPRAMIDEDI HYDROCHLORIDE INJECTION [Concomitant]
     Indication: Vomiting
     Route: 042
     Dates: start: 20220812, end: 20220812
  58. METOCLOPRAMIDEDI HYDROCHLORIDE INJECTION [Concomitant]
     Indication: Vomiting
     Route: 030
     Dates: start: 20220812, end: 20220812
  59. METOCLOPRAMIDEDI HYDROCHLORIDE INJECTION [Concomitant]
     Indication: Vomiting
     Route: 030
     Dates: start: 20220818, end: 20220818
  60. METOCLOPRAMIDEDI HYDROCHLORIDE INJECTION [Concomitant]
     Indication: Vomiting
     Route: 042
     Dates: start: 20220819, end: 20220819
  61. CONCENTRATED SODIUM CHLORIDE INJECTION [Concomitant]
     Indication: Blood sodium
     Route: 042
     Dates: start: 20220813, end: 20220815
  62. CONCENTRATED SODIUM CHLORIDE INJECTION [Concomitant]
     Indication: Blood sodium
     Route: 042
     Dates: start: 20220818, end: 20220822
  63. CONCENTRATED SODIUM CHLORIDE INJECTION [Concomitant]
     Indication: Blood sodium
     Route: 042
     Dates: start: 20220818, end: 20220822
  64. CONCENTRATED SODIUM CHLORIDE INJECTION [Concomitant]
     Indication: Blood sodium
     Route: 042
     Dates: start: 20220812, end: 20220812
  65. CONCENTRATED SODIUM CHLORIDE INJECTION [Concomitant]
     Indication: Blood sodium
     Route: 042
     Dates: start: 20220814, end: 20220814
  66. CONCENTRATED SODIUM CHLORIDE INJECTION [Concomitant]
     Indication: Blood sodium
     Route: 042
     Dates: start: 20220821, end: 20220821
  67. CONCENTRATED SODIUM CHLORIDE INJECTION [Concomitant]
     Indication: Blood sodium
     Route: 042
     Dates: start: 20220826
  68. CONCENTRATED SODIUM CHLORIDE INJECTION [Concomitant]
     Indication: Blood sodium
     Route: 042
     Dates: start: 20220826
  69. FAT-SOLUBLE VITAMIN(II) [Concomitant]
     Indication: Vitamin supplementation
     Route: 042
     Dates: start: 20220818, end: 20220822
  70. FAT-SOLUBLE VITAMIN(II) [Concomitant]
     Indication: Vitamin supplementation
     Route: 042
     Dates: start: 20220826
  71. HUMAN GRANULOCYTE STIMULATING FACTOR INJECTION [Concomitant]
     Indication: Leukocytosis
     Dosage: 150UG/INHAL DAILY
     Route: 058
     Dates: start: 20220818, end: 20220821
  72. HUMAN GRANULOCYTE STIMULATING FACTOR INJECTION [Concomitant]
     Indication: Leukocytosis
     Dosage: 150UG/INHAL DAILY
     Route: 042
     Dates: start: 20220826
  73. HUMAN GRANULOCYTE STIMULATING FACTOR INJECTION [Concomitant]
     Indication: Leukocytosis
     Dosage: 150UG/INHAL DAILY
     Route: 058
     Dates: start: 20220826
  74. HUMAN INTERLEUKIN-11 FOR INJECTION [Concomitant]
     Indication: Plateletcrit
     Route: 058
     Dates: start: 20220821, end: 20220822
  75. HUMAN INTERLEUKIN-11 FOR INJECTION [Concomitant]
     Indication: Plateletcrit
     Route: 058
     Dates: start: 20220822, end: 20220822
  76. HUMAN INTERLEUKIN-11 FOR INJECTION [Concomitant]
     Indication: Plateletcrit
     Route: 058
     Dates: start: 20220826
  77. NIFEDIPINE CONTROLLED-RELEASE TABLETS [Concomitant]
     Indication: Up and down phenomenon
     Route: 048
     Dates: start: 20220804, end: 20220810
  78. IOPAMIDOL [Concomitant]
     Active Substance: IOPAMIDOL
     Indication: Radiotherapy
     Route: 042
     Dates: start: 20220808, end: 20220808
  79. COMPOUND MEGLUMINE DIATRIZOATE INJECTION [Concomitant]
     Indication: Radiotherapy
     Route: 048
     Dates: start: 20220808, end: 20220808
  80. DEXAMETHASONE SODIUM PHOSPHATE [Concomitant]
     Active Substance: DEXAMETHASONE SODIUM PHOSPHATE
     Indication: Radiotherapy
     Route: 042
     Dates: start: 20220808, end: 20220808
  81. GADOTERIC ACID MEGLUMINE SALT INJECTION [Concomitant]
     Indication: Radiotherapy
     Route: 042
     Dates: start: 20220808, end: 20220808
  82. VITAMIN B6 [Concomitant]
     Active Substance: PYRIDOXINE HYDROCHLORIDE
     Indication: Vitamin supplementation
     Route: 042
     Dates: start: 20220812, end: 20220812
  83. FUROSEMIDE [Concomitant]
     Active Substance: FUROSEMIDE
     Indication: Polyuria
     Route: 042
     Dates: start: 20220812, end: 20220812
  84. POTASSIUM CHLORIDE GRANULES [Concomitant]
     Indication: Mineral supplementation
     Route: 048
     Dates: start: 20220818, end: 20220819
  85. ALBUMIN HUMAN [Concomitant]
     Active Substance: ALBUMIN HUMAN
     Indication: Blood albumin
     Route: 042
     Dates: start: 20220821, end: 20220821
  86. DENGXIN SHENGMAI CAPSULE [Concomitant]
     Indication: Vitamin supplementation
     Route: 048
     Dates: start: 20220821, end: 20220821
  87. DENGXIN SHENGMAI CAPSULE [Concomitant]
     Indication: Vitamin supplementation
     Route: 048
     Dates: start: 20220822
  88. HUMAN ERYTHROPOIETIN INJECTION [Concomitant]
     Indication: Haemoglobin
     Route: 058
     Dates: start: 20220822, end: 20220822
  89. DOMPERIDONE [Concomitant]
     Active Substance: DOMPERIDONE
     Indication: Vomiting
     Route: 048
     Dates: start: 20220822
  90. ILAPRAZOLE ENTERIC-COATED TABLETS [Concomitant]
     Indication: Hyperchlorhydria
     Route: 048
     Dates: start: 20220822
  91. SHEMA ORAL LIQUID [Concomitant]
     Indication: Productive cough
     Route: 048
     Dates: start: 20220822
  92. MOXIFLOXACIN HYDROCHLORIDE AND SODIUM CHLORIDE INJECTION [Concomitant]
     Indication: Antiinflammatory therapy
     Route: 042
     Dates: start: 20220826

REACTIONS (2)
  - Thrombocytopenia [Recovered/Resolved]
  - Granulocytopenia [Recovered/Resolved]

NARRATIVE: CASE EVENT DATE: 20220826
